FAERS Safety Report 4451650-8 (Version None)
Quarter: 2004Q3

REPORT INFORMATION
  Report Type: 
  Country: None (occurrence: None)
  Receive Date: 20040915
  Receipt Date: 20040901
  Transmission Date: 20050211
  Serious: Yes (Hospitalization)
  Sender: FDA-Public Use
  Company Number: 2004051823

PATIENT
  Age: 76 Year
  Sex: Male
  Weight: 46 kg

DRUGS (10)
  1. NORVASC [Suspect]
     Indication: HYPERTENSION
     Dosage: 5 MG (5 MG, 1 IN 1 D), ORAL  (DURATION: ^ABOUT 1 YEAR^ - 07/22/04)
     Route: 048
     Dates: end: 20040722
  2. FAMOTIDINE [Suspect]
     Indication: ILL-DEFINED DISORDER
     Dosage: 20 MG (10 MG, 2 IN 1 D),
     Dates: start: 20000406, end: 20040702
  3. PRANLUKAST (PRANLUKAST) [Suspect]
     Indication: ILL-DEFINED DISORDER
     Dosage: (2 IN 1 D)
     Dates: start: 19990731, end: 20040702
  4. CEFEPIME HYDROCHLORIDE (CEFEPINE HYDROCHLORIDE) [Suspect]
     Indication: ILL-DEFINED DISORDER
     Dosage: 2 GRAM (1 GRAM, 2 IN 1 D),
     Dates: start: 20040625, end: 20040702
  5. CLINDAMYCIN HCL [Suspect]
     Indication: ILL-DEFINED DISORDER
     Dosage: 1.2 GRAM (0.6 GRAM, 2 IN 1D),
     Dates: start: 20040702, end: 20040707
  6. REBAMIPIDE (REBAMIPIDE) [Suspect]
     Indication: ILL-DEFINED DISORDER
     Dosage: ORAL
     Route: 048
     Dates: start: 19990731, end: 20040707
  7. TULOBUTEROL HYDROCHLORIDE (TULOBUTEROL HYDROCHLORIDE) [Concomitant]
  8. THEOPHYLLINE [Concomitant]
  9. CEFTAZIDIME SODIUM [Concomitant]
  10. FLUTICASONE PROPIONATE [Concomitant]

REACTIONS (3)
  - PLATELET COUNT DECREASED [None]
  - PNEUMONIA [None]
  - WHITE BLOOD CELL COUNT DECREASED [None]
